APPROVED DRUG PRODUCT: GLIPIZIDE
Active Ingredient: GLIPIZIDE
Strength: 5MG
Dosage Form/Route: TABLET;ORAL
Application: A074370 | Product #001
Applicant: WATSON LABORATORIES INC
Approved: Nov 22, 1994 | RLD: No | RS: No | Type: DISCN